FAERS Safety Report 22107985 (Version 1)
Quarter: 2023Q1

REPORT INFORMATION
  Report Type: Report from Study
  Country: GB (occurrence: GB)
  Receive Date: 20230317
  Receipt Date: 20230317
  Transmission Date: 20230418
  Serious: Yes (Other)
  Sender: FDA-Public Use
  Company Number: GB-002147023-NVSC2023GB055414

PATIENT
  Sex: Male

DRUGS (1)
  1. COSENTYX [Suspect]
     Active Substance: SECUKINUMAB
     Indication: Psoriatic arthropathy
     Dosage: 150 MG, QW (0,1,2,3,4 MONTHLY)
     Route: 058

REACTIONS (5)
  - Ankylosing spondylitis [Unknown]
  - Mobility decreased [Unknown]
  - Condition aggravated [Unknown]
  - Tremor [Unknown]
  - Drug ineffective [Unknown]
